FAERS Safety Report 26097970 (Version 1)
Quarter: 2025Q4

REPORT INFORMATION
  Report Type: Spontaneous
  Country: CH (occurrence: CH)
  Receive Date: 20251127
  Receipt Date: 20251127
  Transmission Date: 20260118
  Serious: Yes (Life-Threatening)
  Sender: JOHNSON AND JOHNSON
  Company Number: None

PATIENT
  Age: 9 Year
  Sex: Male
  Weight: 35 kg

DRUGS (14)
  1. DARZALEX [Suspect]
     Active Substance: DARATUMUMAB
     Indication: Transfusion reaction
     Dosage: 3 DOSES TOTAL (29.09.2025 / 06.10.2025 /19.10.2025).
     Dates: start: 20250929, end: 20251019
  2. RITUXIMAB [Suspect]
     Active Substance: RITUXIMAB
     Dosage: 4 DOSES TOTAL (07.02.024 / 15.02.2024 / 21.02.2024 / 28.02.2024)
     Route: 042
     Dates: start: 20240207, end: 20240228
  3. CYCLOSPORINE [Suspect]
     Active Substance: CYCLOSPORINE
     Indication: Alloimmunisation
     Route: 048
     Dates: start: 20250911, end: 20251008
  4. TRUXIMA [Suspect]
     Active Substance: RITUXIMAB-ABBS
     Route: 042
     Dates: start: 20250623, end: 20250623
  5. PRIVIGEN [Suspect]
     Active Substance: HUMAN IMMUNOGLOBULIN G
     Indication: Transfusion reaction
     Dosage: 15 G LE 01.09.2020, 17 G LE 23.09.2020, 25 G LE 24.06.2025, 27.4 G LE 08.08.2025, 27 G LE 19.08.2025
     Route: 042
     Dates: start: 20200901, end: 20251007
  6. MYCOPHENOLATE MOFETIL [Suspect]
     Active Substance: MYCOPHENOLATE MOFETIL
     Indication: Immunosuppression
     Route: 048
     Dates: start: 20250625, end: 202510
  7. ACTEMRA [Concomitant]
     Active Substance: TOCILIZUMAB
     Indication: Product used for unknown indication
     Dates: start: 20240229, end: 20240229
  8. PREDNISONE [Concomitant]
     Active Substance: PREDNISONE
     Indication: Product used for unknown indication
     Dosage: 5 MG 2X/DAY FROM 09.10 TO 16.10
     Dates: start: 20250625
  9. METHYLPREDNISOLONE [Concomitant]
     Active Substance: METHYLPREDNISOLONE
     Indication: Product used for unknown indication
     Route: 042
     Dates: start: 20250912, end: 20250914
  10. DEXAMETHASONE [Concomitant]
     Active Substance: DEXAMETHASONE
     Indication: Product used for unknown indication
     Dosage: 2 MG 1X/DAY (REDUCED ON 04.10) UNTIL 08.10.25
  11. OSPEN [Concomitant]
     Indication: Product used for unknown indication
     Dosage: 500,000 IU = 6.25 ML ORAL TWICE DAILY STARTING SEPTEMBER 11TH
  12. JADENU [Concomitant]
     Active Substance: DEFERASIROX
     Indication: Product used for unknown indication
     Dosage: 180 MG THREE TIMES DAILY (18 MG/KG/DAY) STARTED AUGUST 26, 2025, INCREASED ON OCTOBER 4TH
  13. SERETIDE [Concomitant]
     Active Substance: FLUTICASONE PROPIONATE\SALMETEROL XINAFOATE
     Indication: Product used for unknown indication
     Dosage: 125 MCG ONCE DAILY TWICE DAILY
  14. ERYTHROPOIETIN [Concomitant]
     Active Substance: ERYTHROPOIETIN
     Indication: Product used for unknown indication
     Dates: start: 20250509

REACTIONS (2)
  - Posterior reversible encephalopathy syndrome [Recovering/Resolving]
  - Off label use [Unknown]

NARRATIVE: CASE EVENT DATE: 20251008
